FAERS Safety Report 6528016-X (Version None)
Quarter: 2010Q1

REPORT INFORMATION
  Report Type: 
  Country: None (occurrence: None)
  Receive Date: 20100105
  Receipt Date: 20100105
  Transmission Date: 20100710
  Serious: No
  Sender: FDA-Public Use
  Company Number: None

PATIENT
  Age: 61 Year
  Sex: Male

DRUGS (2)
  1. ARIPIPRAZOLE [Suspect]
     Indication: AGGRESSION
     Dosage: 2.5 MG PRN PO
     Route: 048
     Dates: start: 20091102, end: 20091102
  2. ARIPIPRAZOLE [Suspect]
     Indication: IRRITABILITY
     Dosage: 2.5 MG PRN PO
     Route: 048
     Dates: start: 20091102, end: 20091102

REACTIONS (1)
  - ANGIOEDEMA [None]
